FAERS Safety Report 21584233 (Version 1)
Quarter: 2022Q4

REPORT INFORMATION
  Report Type: Spontaneous
  Country: US (occurrence: None)
  Receive Date: 20221110
  Receipt Date: 20221110
  Transmission Date: 20230113
  Serious: No
  Sender: FDA-Public Use
  Company Number: None

PATIENT
  Sex: Male

DRUGS (1)
  1. PREGNYL [Suspect]
     Active Substance: CHORIOGONADOTROPIN ALFA
     Dosage: 150 UNITS DAILY SUBCUTANEOUS?
     Route: 058
     Dates: start: 202207

REACTIONS (3)
  - Pain in extremity [None]
  - Arthralgia [None]
  - Feeling abnormal [None]
